FAERS Safety Report 8739280 (Version 2)
Quarter: 2012Q4

REPORT INFORMATION
  Report Type: 
  Country: CO (occurrence: CO)
  Receive Date: 20120823
  Receipt Date: 20120907
  Transmission Date: 20130627
  Serious: Yes (Other)
  Sender: FDA-Public Use
  Company Number: CO-ELI_LILLY_AND_COMPANY-CO201208004573

PATIENT
  Age: 67 Year
  Sex: Female

DRUGS (5)
  1. HUMULIN NPH [Suspect]
     Indication: TYPE 2 DIABETES MELLITUS
     Dosage: 20 u, qd
     Route: 058
     Dates: start: 201206
  2. LOSARTAN [Concomitant]
     Dosage: UNK, unknown
  3. ENALAPRIL [Concomitant]
     Dosage: UNK, unknown
  4. VERAPAMIL [Concomitant]
  5. IRON W/VITAMINS NOS [Concomitant]
     Indication: HAEMOGLOBIN

REACTIONS (5)
  - Swelling face [Not Recovered/Not Resolved]
  - Skin discolouration [Recovered/Resolved]
  - Inflammation [Not Recovered/Not Resolved]
  - Oedema peripheral [Not Recovered/Not Resolved]
  - Arteriosclerosis [Not Recovered/Not Resolved]
